FAERS Safety Report 9476886 (Version 6)
Quarter: 2014Q3

REPORT INFORMATION
  Report Type: Spontaneous
  Country: US (occurrence: US)
  Receive Date: 20130826
  Receipt Date: 20140717
  Transmission Date: 20150326
  Serious: Yes (Hospitalization)
  Sender: FDA-Public Use
  Company Number: US-GLAXOSMITHKLINE-A1038578A

PATIENT
  Age: 85 Year
  Sex: Female

DRUGS (15)
  1. PAXIL CR [Suspect]
     Active Substance: PAROXETINE HYDROCHLORIDE
     Indication: PRODUCT USED FOR UNKNOWN INDICATION
     Dosage: 25MG UNKNOWN
     Route: 065
     Dates: start: 20051104
  2. FUROSEMIDE. [Concomitant]
     Active Substance: FUROSEMIDE
  3. ROCEPHIN [Suspect]
     Active Substance: CEFTRIAXONE SODIUM
     Indication: GASTROINTESTINAL INFECTION
     Route: 065
  4. ADVAIR HFA [Suspect]
     Active Substance: FLUTICASONE PROPIONATE\SALMETEROL XINAFOATE
     Indication: PRODUCT USED FOR UNKNOWN INDICATION
     Route: 065
     Dates: start: 20070727
  5. POTASSIUM [Concomitant]
     Active Substance: POTASSIUM
  6. VITAMINS [Concomitant]
     Active Substance: VITAMINS
  7. ANTI-HYPERTENSIVE [Concomitant]
     Active Substance: UNSPECIFIED INGREDIENT
  8. COREG [Suspect]
     Active Substance: CARVEDILOL
     Indication: CARDIAC FAILURE CONGESTIVE
     Dosage: 12.5MG UNKNOWN
     Route: 048
     Dates: start: 20051115
  9. CARVEDILOL PHOSPHATE [Suspect]
     Active Substance: CARVEDILOL PHOSPHATE
     Indication: CARDIAC FAILURE CONGESTIVE
     Dosage: 12.5MG TWICE PER DAY
     Route: 048
  10. KEFLEX [Concomitant]
     Active Substance: CEPHALEXIN
  11. PAXIL [Suspect]
     Active Substance: PAROXETINE HYDROCHLORIDE
     Indication: PRODUCT USED FOR UNKNOWN INDICATION
     Dosage: 25MG UNKNOWN
     Route: 065
     Dates: start: 20051104, end: 20080110
  12. NEXIUM [Concomitant]
     Active Substance: ESOMEPRAZOLE MAGNESIUM
  13. PAIN MEDICATION [Concomitant]
     Active Substance: UNSPECIFIED INGREDIENT
  14. HYDROCODONE, ACETAMINOPHEN [Suspect]
     Active Substance: ACETAMINOPHEN\HYDROCODONE BITARTRATE
     Indication: PAIN
     Dosage: 1TAB AS REQUIRED
     Route: 065
  15. LASIX [Concomitant]
     Active Substance: FUROSEMIDE

REACTIONS (38)
  - Blood pressure increased [Not Recovered/Not Resolved]
  - Stent placement [Unknown]
  - Vascular stent insertion [Unknown]
  - Tonsillectomy [Unknown]
  - Colon operation [Unknown]
  - Fall [Unknown]
  - Gait disturbance [Not Recovered/Not Resolved]
  - Cystitis [Not Recovered/Not Resolved]
  - Heart rate increased [Unknown]
  - Nerve injury [Not Recovered/Not Resolved]
  - Urinary tract infection [Unknown]
  - Feeling abnormal [Unknown]
  - Angiopathy [Unknown]
  - Malaise [Unknown]
  - Cardiac operation [Unknown]
  - Staphylococcal infection [Unknown]
  - Gastrointestinal infection [Unknown]
  - Hernia repair [Unknown]
  - Hernia [Unknown]
  - Multiple fractures [Unknown]
  - Drug ineffective [Unknown]
  - Walking aid user [Unknown]
  - Injury [Unknown]
  - Secretion discharge [Not Recovered/Not Resolved]
  - Dizziness [Not Recovered/Not Resolved]
  - Pain in extremity [Not Recovered/Not Resolved]
  - Abasia [Not Recovered/Not Resolved]
  - Contusion [Unknown]
  - Pollakiuria [Not Recovered/Not Resolved]
  - Arterial occlusive disease [Recovering/Resolving]
  - Back pain [Not Recovered/Not Resolved]
  - Activities of daily living impaired [Not Recovered/Not Resolved]
  - Investigation [Unknown]
  - Pain [Not Recovered/Not Resolved]
  - Oropharyngeal pain [Unknown]
  - Head injury [Unknown]
  - Hypertension [Unknown]
  - Sinusitis [Unknown]

NARRATIVE: CASE EVENT DATE: 2012
